FAERS Safety Report 11969165 (Version 2)
Quarter: 2021Q3

REPORT INFORMATION
  Report Type: Report from Study
  Country: US (occurrence: US)
  Receive Date: 20160128
  Receipt Date: 20210920
  Transmission Date: 20211014
  Serious: No
  Sender: FDA-Public Use
  Company Number: PHEH2015US004862

PATIENT
  Sex: Female
  Weight: 56 kg

DRUGS (2)
  1. TASIGNA [Suspect]
     Active Substance: NILOTINIB
     Indication: HODGKIN^S DISEASE NODULAR SCLEROSIS
     Dosage: 300 MG, BID
     Route: 048
  2. TASIGNA [Suspect]
     Active Substance: NILOTINIB
     Indication: PHILADELPHIA POSITIVE CHRONIC MYELOID LEUKAEMIA
     Dosage: 150 MG, BID,EVERY OTHER DAY
     Route: 048
     Dates: start: 20130917

REACTIONS (3)
  - Muscle spasms [Unknown]
  - Fatigue [Recovering/Resolving]
  - Ill-defined disorder [Unknown]
